FAERS Safety Report 25230626 (Version 2)
Quarter: 2025Q3

REPORT INFORMATION
  Report Type: Spontaneous
  Country: US (occurrence: US)
  Receive Date: 20250423
  Receipt Date: 20250802
  Transmission Date: 20251020
  Serious: Yes (Other)
  Sender: ALEXION PHARMACEUTICALS
  Company Number: US-AstraZeneca-CH-00851181A

PATIENT
  Sex: Male

DRUGS (1)
  1. TAGRISSO [Suspect]
     Active Substance: OSIMERTINIB
     Indication: Lung neoplasm malignant
     Route: 065

REACTIONS (6)
  - Therapy cessation [Unknown]
  - Carcinoembryonic antigen increased [Unknown]
  - Lung carcinoma cell type unspecified recurrent [Unknown]
  - Product dose omission issue [Unknown]
  - Product storage error [Unknown]
  - Memory impairment [Unknown]
